FAERS Safety Report 7412272-X (Version None)
Quarter: 2011Q2

REPORT INFORMATION
  Report Type: 
  Country: None (occurrence: None)
  Receive Date: 20110413
  Receipt Date: 20110330
  Transmission Date: 20111010
  Serious: Yes (Other)
  Sender: FDA-Public Use
  Company Number: CA-JNJFOC-20110400489

PATIENT
  Sex: Male
  Weight: 82 kg

DRUGS (7)
  1. DIGOXIN [Concomitant]
     Route: 065
  2. PANTOLOC [Concomitant]
     Route: 065
  3. REMICADE [Suspect]
     Indication: RHEUMATOID ARTHRITIS
     Route: 042
  4. REMICADE [Suspect]
     Route: 042
  5. METHOTREXATE [Concomitant]
     Route: 065
  6. ADVAIR DISKUS 100/50 [Concomitant]
     Route: 065
  7. VENTOLIN [Concomitant]
     Route: 065

REACTIONS (3)
  - VIRAL INFECTION [None]
  - DEHYDRATION [None]
  - VOMITING [None]
